FAERS Safety Report 8512231 (Version 2)
Quarter: 2014Q1

REPORT INFORMATION
  Report Type: Spontaneous
  Country: US (occurrence: US)
  Receive Date: 20120413
  Receipt Date: 20140124
  Transmission Date: 20141002
  Serious: No
  Sender: FDA-Public Use
  Company Number: US-ASTRAZENECA-2011SE14130

PATIENT
  Age: 42 Year
  Sex: Female
  Weight: 83.5 kg

DRUGS (22)
  1. CALCIUM CITRATE [Concomitant]
  2. MILK THISTLE [Concomitant]
  3. PERCOCET [Concomitant]
     Indication: BONE DISORDER
  4. ZANAFLEX [Concomitant]
     Indication: MUSCLE SPASMS
  5. LAMICTAL [Concomitant]
     Indication: BIPOLAR DISORDER
  6. NEXIUM [Suspect]
     Indication: GASTROOESOPHAGEAL REFLUX DISEASE
     Route: 048
     Dates: end: 201311
  7. OMEPRAZOLE [Suspect]
     Indication: GASTROOESOPHAGEAL REFLUX DISEASE
     Route: 048
  8. MORPHINE [Suspect]
     Indication: BONE DISORDER
     Route: 065
  9. MORPHINE [Suspect]
     Indication: PAIN
     Route: 065
  10. XANAX [Concomitant]
     Indication: DEPRESSION
  11. XANAX [Concomitant]
     Indication: BIPOLAR DISORDER
  12. XANAX [Concomitant]
     Indication: PANIC ATTACK
  13. XANAX [Concomitant]
     Indication: ANXIETY
  14. OXYCODONE [Concomitant]
  15. HCTZ [Concomitant]
     Indication: FLUID RETENTION
  16. LEXAPRO [Concomitant]
     Indication: BIPOLAR DISORDER
  17. ESTRADIOL [Concomitant]
     Indication: EUSTACHIAN TUBE DISORDER
  18. VITAMIN D [Concomitant]
  19. LIPITOR [Concomitant]
     Indication: BLOOD CHOLESTEROL INCREASED
  20. LAMOTRIGINE [Concomitant]
  21. SYNTHROID [Concomitant]
     Indication: THYROID DISORDER
  22. NORAFLEX [Concomitant]

REACTIONS (12)
  - Chest pain [Unknown]
  - Gastrooesophageal reflux disease [Unknown]
  - Gastric disorder [Unknown]
  - Dyspepsia [Unknown]
  - Dyspepsia [Unknown]
  - Dyspepsia [Unknown]
  - Eructation [Unknown]
  - Malaise [Unknown]
  - Epigastric discomfort [Unknown]
  - Vomiting [Unknown]
  - Nausea [Unknown]
  - Drug dose omission [Unknown]
